FAERS Safety Report 7536309-2 (Version None)
Quarter: 2011Q2

REPORT INFORMATION
  Report Type: 
  Country: None (occurrence: None)
  Receive Date: 20110608
  Receipt Date: 20110608
  Transmission Date: 20111010
  Serious: No
  Sender: FDA-Public Use
  Company Number: None

PATIENT
  Age: 59 Year
  Sex: Female
  Weight: 52.1637 kg

DRUGS (2)
  1. PANTOPRAZOLE [Suspect]
     Indication: BARRETT'S OESOPHAGUS
     Dosage: 40MG ONE A DAY PO
     Route: 048
     Dates: start: 20110225, end: 20110607
  2. OMEPRAZOLE [Suspect]
     Indication: BARRETT'S OESOPHAGUS
     Dosage: 20MG ONE A DAY PO
     Route: 048
     Dates: start: 20081124, end: 20090728

REACTIONS (2)
  - NAUSEA [None]
  - CONDITION AGGRAVATED [None]
